FAERS Safety Report 23783932 (Version 3)
Quarter: 2024Q2

REPORT INFORMATION
  Report Type: Spontaneous
  Country: US (occurrence: US)
  Receive Date: 20240425
  Receipt Date: 20240503
  Transmission Date: 20240715
  Serious: Yes (Other)
  Sender: FDA-Public Use
  Company Number: US-MYOVANT SCIENCES GMBH-2024MYSCI0400617

PATIENT
  Age: 65 Year
  Sex: Male

DRUGS (3)
  1. ORGOVYX [Suspect]
     Active Substance: RELUGOLIX
     Indication: Prostate cancer
     Dosage: 360 MILLIGRAM, ONE TIME DOSE
     Route: 048
     Dates: start: 20240404, end: 20240404
  2. ORGOVYX [Suspect]
     Active Substance: RELUGOLIX
     Dosage: 120 MILLIGRAM, QD
     Route: 048
     Dates: start: 20240405, end: 202404
  3. XTANDI [Suspect]
     Active Substance: ENZALUTAMIDE
     Indication: Prostate cancer
     Dosage: 160 MILLIGRAM, QD
     Route: 048
     Dates: start: 20240404

REACTIONS (6)
  - Faecaloma [Unknown]
  - Hypotension [Unknown]
  - Constipation [Not Recovered/Not Resolved]
  - Abdominal discomfort [Unknown]
  - Haemorrhoids [Unknown]
  - Pain [Unknown]

NARRATIVE: CASE EVENT DATE: 20240401
